FAERS Safety Report 4751275-0 (Version None)
Quarter: 2005Q3

REPORT INFORMATION
  Report Type: 
  Country: None (occurrence: None)
  Receive Date: 20050824
  Receipt Date: 20050815
  Transmission Date: 20060218
  Serious: Yes (Hospitalization)
  Sender: FDA-Public Use
  Company Number: US-JNJFOC-20040607155

PATIENT
  Sex: Female

DRUGS (25)
  1. INFLIXIMAB [Suspect]
     Route: 042
  2. INFLIXIMAB [Suspect]
     Indication: RHEUMATOID ARTHRITIS
     Route: 042
  3. ADVAIR DISKUS 100/50 [Concomitant]
  4. ADVAIR DISKUS 100/50 [Concomitant]
     Dosage: 250-50 MCG/DOSE MISC
  5. LANTUS [Concomitant]
     Dosage: 100 U/ML
  6. SPIRONALACTONE [Concomitant]
  7. PREDNISONE [Concomitant]
     Route: 048
  8. AVANDIA [Concomitant]
  9. FOLIC ACID [Concomitant]
  10. METHOTREXATE SODIUM [Concomitant]
  11. ACTONEL [Concomitant]
  12. ALLEGRA [Concomitant]
  13. ALLEGRA [Concomitant]
  14. NASONEX [Concomitant]
     Dosage: 50 MCG/ACT
  15. VITAMIN B-12 [Concomitant]
  16. TYLENOL [Concomitant]
  17. LIPITOR [Concomitant]
  18. VITAMIN B6 [Concomitant]
  19. DYAZIDE [Concomitant]
  20. DYAZIDE [Concomitant]
     Dosage: 37.5-25 MG
  21. TENORMIN [Concomitant]
  22. DECADRON [Concomitant]
  23. DECADRON [Concomitant]
  24. LORTAB [Concomitant]
  25. LORTAB [Concomitant]

REACTIONS (2)
  - ADRENAL NEOPLASM [None]
  - CUSHING'S SYNDROME [None]
